FAERS Safety Report 7723251-7 (Version None)
Quarter: 2011Q3

REPORT INFORMATION
  Report Type: 
  Country: None (occurrence: None)
  Receive Date: 20110826
  Receipt Date: 20110817
  Transmission Date: 20111222
  Serious: Yes (Other)
  Sender: FDA-Public Use
  Company Number: 2011-2886

PATIENT
  Sex: Female

DRUGS (3)
  1. DYSPORT [Suspect]
     Indication: SKIN WRINKLING
     Dosage: 40 UNITS (40 UNITS,SINGLE CYCLE),SUBCUTANEOUS
     Route: 058
     Dates: start: 20110801, end: 20110801
  2. DYSPORT [Suspect]
     Indication: SKIN COSMETIC PROCEDURE
     Dosage: 40 UNITS (40 UNITS,SINGLE CYCLE),SUBCUTANEOUS
     Route: 058
     Dates: start: 20110801, end: 20110801
  3. DYSPORT [Suspect]
     Indication: OFF LABEL USE
     Dosage: 40 UNITS (40 UNITS,SINGLE CYCLE),SUBCUTANEOUS
     Route: 058
     Dates: start: 20110801, end: 20110801

REACTIONS (1)
  - CELLULITIS [None]
